FAERS Safety Report 7149786-6 (Version None)
Quarter: 2010Q4

REPORT INFORMATION
  Report Type: 
  Country: None (occurrence: None)
  Receive Date: 20101210
  Receipt Date: 20101201
  Transmission Date: 20110411
  Serious: No
  Sender: FDA-Public Use
  Company Number: US-BIOGENIDEC-2010BI035775

PATIENT
  Age: 42 Year
  Sex: Female

DRUGS (1)
  1. TYSABRI [Suspect]
     Indication: MULTIPLE SCLEROSIS
     Route: 042
     Dates: start: 20100728, end: 20101201

REACTIONS (5)
  - CHEST DISCOMFORT [None]
  - DIZZINESS [None]
  - MUSCLE TIGHTNESS [None]
  - SWOLLEN TONGUE [None]
  - URTICARIA [None]
